FAERS Safety Report 5660301-6 (Version None)
Quarter: 2008Q1

REPORT INFORMATION
  Report Type: 
  Country: None (occurrence: None)
  Receive Date: 20080306
  Receipt Date: 20080226
  Transmission Date: 20080703
  Serious: Yes (Other)
  Sender: FDA-Public Use
  Company Number: IL-JNJFOC-20080206304

PATIENT
  Sex: Female

DRUGS (1)
  1. DECITABINE (DECITABINE) LYOPHILIZED POWDER [Suspect]
     Indication: MYELODYSPLASTIC SYNDROME
     Dosage: INTRAVENOUS
     Route: 042

REACTIONS (5)
  - ADDUCTOR VOCAL CORD WEAKNESS [None]
  - ASTHMA [None]
  - DYSPNOEA [None]
  - NERVOUS SYSTEM DISORDER [None]
  - STRIDOR [None]
